FAERS Safety Report 6053078-6 (Version None)
Quarter: 2009Q1

REPORT INFORMATION
  Report Type: 
  Country: None (occurrence: None)
  Receive Date: 20090127
  Receipt Date: 20090123
  Transmission Date: 20090719
  Serious: Yes (Hospitalization)
  Sender: FDA-Public Use
  Company Number: FR-BRISTOL-MYERS SQUIBB COMPANY-14482368

PATIENT
  Age: 67 Year
  Sex: Male

DRUGS (3)
  1. GLUCOPHAGE [Suspect]
     Indication: DIABETES MELLITUS
     Route: 048
     Dates: start: 19980101, end: 20081213
  2. ALDACTONE [Suspect]
     Route: 048
     Dates: start: 20081002, end: 20081213
  3. AMARYL [Suspect]
     Indication: DIABETES MELLITUS
     Route: 048
     Dates: start: 19980101, end: 20081213

REACTIONS (1)
  - THROMBOCYTOPENIA [None]
